FAERS Safety Report 10995020 (Version 2)
Quarter: 2015Q2

REPORT INFORMATION
  Report Type: Spontaneous
  Country: CN (occurrence: CN)
  Receive Date: 20150407
  Receipt Date: 20150407
  Transmission Date: 20150821
  Serious: Yes (Death, Hospitalization)
  Sender: FDA-Public Use
  Company Number: PHHY2015CN036280

PATIENT
  Age: 67 Year
  Sex: Male

DRUGS (12)
  1. DEXAMETHASONE. [Suspect]
     Active Substance: DEXAMETHASONE
     Indication: HYPEREOSINOPHILIC SYNDROME
     Dosage: 15 MG, QD
     Route: 042
  2. DOPAMINE [Concomitant]
     Active Substance: DOPAMINE\DOPAMINE HYDROCHLORIDE
     Indication: PRODUCT USED FOR UNKNOWN INDICATION
     Route: 065
  3. IMATINIB [Suspect]
     Active Substance: IMATINIB
     Indication: HYPEREOSINOPHILIC SYNDROME
     Dosage: 100 MG, QD
     Route: 065
  4. ADRENALINE [Concomitant]
     Active Substance: EPINEPHRINE
     Indication: PRODUCT USED FOR UNKNOWN INDICATION
     Route: 065
  5. METHYLPREDNISOLONE. [Suspect]
     Active Substance: METHYLPREDNISOLONE
     Dosage: 20 UNK, UNK
     Route: 042
  6. DEXAMETHASONE. [Suspect]
     Active Substance: DEXAMETHASONE
     Indication: IMMUNOSUPPRESSION
  7. METHYLPREDNISOLONE. [Suspect]
     Active Substance: METHYLPREDNISOLONE
     Indication: IMMUNOSUPPRESSION
     Dosage: 80 MG, QD
     Route: 042
  8. HIDROXIUREA [Suspect]
     Active Substance: HYDROXYUREA
     Indication: HYPEREOSINOPHILIC SYNDROME
     Dosage: 1500 MG, QD
     Route: 065
  9. METHYLPREDNISOLONE. [Suspect]
     Active Substance: METHYLPREDNISOLONE
     Indication: HYPEREOSINOPHILIC SYNDROME
     Dosage: 40 MG, QD
     Route: 042
  10. HIDROXIUREA [Suspect]
     Active Substance: HYDROXYUREA
     Indication: IMMUNOSUPPRESSION
  11. ALAMIN [Concomitant]
     Indication: PRODUCT USED FOR UNKNOWN INDICATION
     Route: 065
  12. IMATINIB [Suspect]
     Active Substance: IMATINIB
     Indication: IMMUNOSUPPRESSION
     Dosage: 200 MG, QD
     Route: 065

REACTIONS (7)
  - Pulmonary embolism [Fatal]
  - Cardiac failure [Fatal]
  - Brain natriuretic peptide increased [Fatal]
  - Respiratory distress [Unknown]
  - Multi-organ failure [Fatal]
  - Respiratory alkalosis [Unknown]
  - Eosinophil count increased [Unknown]
